FAERS Safety Report 6223131-2 (Version None)
Quarter: 2009Q2

REPORT INFORMATION
  Report Type: 
  Country: None (occurrence: None)
  Receive Date: 20090611
  Receipt Date: 20090602
  Transmission Date: 20091009
  Serious: Yes (Other)
  Sender: FDA-Public Use
  Company Number: US-AMGEN-QUU349880

PATIENT
  Sex: Female

DRUGS (1)
  1. ENBREL [Suspect]
     Indication: DRUG USE FOR UNKNOWN INDICATION
     Route: 058
     Dates: start: 20090119

REACTIONS (15)
  - CHEILITIS [None]
  - CHEST PAIN [None]
  - DIZZINESS [None]
  - INFLUENZA [None]
  - INJECTION SITE HAEMATOMA [None]
  - INJECTION SITE IRRITATION [None]
  - INJECTION SITE PAIN [None]
  - LIP SWELLING [None]
  - OEDEMA PERIPHERAL [None]
  - OFF LABEL USE [None]
  - PHARYNGEAL OEDEMA [None]
  - PRODUCTIVE COUGH [None]
  - SKIN EXFOLIATION [None]
  - SKIN ULCER [None]
  - VISUAL ACUITY REDUCED [None]
